FAERS Safety Report 6494455-9 (Version None)
Quarter: 2009Q4

REPORT INFORMATION
  Report Type: 
  Country: None (occurrence: None)
  Receive Date: 20091214
  Receipt Date: 20090223
  Transmission Date: 20100525
  Serious: Yes (Hospitalization)
  Sender: FDA-Public Use
  Company Number: US-BRISTOL-MYERS SQUIBB COMPANY-14514251

PATIENT
  Age: 80 Year
  Sex: Female

DRUGS (6)
  1. ABILIFY [Suspect]
     Indication: HYPOMANIA
     Route: 048
     Dates: start: 20081201
  2. ABILIFY [Suspect]
     Indication: DEPRESSION
     Route: 048
     Dates: start: 20081201
  3. ABILIFY [Suspect]
     Indication: BIPOLAR DISORDER
     Route: 048
     Dates: start: 20081201
  4. LITHIUM [Suspect]
     Indication: BIPOLAR DISORDER
  5. PROVIGIL [Concomitant]
  6. DEPLIN [Concomitant]

REACTIONS (1)
  - OEDEMA PERIPHERAL [None]
